FAERS Safety Report 16785795 (Version 1)
Quarter: 2019Q3

REPORT INFORMATION
  Report Type: Report from Study
  Country: US (occurrence: US)
  Receive Date: 20190909
  Receipt Date: 20190909
  Transmission Date: 20191005
  Serious: Yes (Other)
  Sender: FDA-Public Use
  Company Number: US-TEVA-2019-US-1105417

PATIENT

DRUGS (8)
  1. MYCOPHENOLATE MOFETIL. [Suspect]
     Active Substance: MYCOPHENOLATE MOFETIL
     Indication: IMMUNOSUPPRESSANT DRUG THERAPY
     Route: 065
  2. METHYLPREDNISOLONE. [Suspect]
     Active Substance: METHYLPREDNISOLONE
     Indication: IMMUNOSUPPRESSANT DRUG THERAPY
     Route: 042
  3. VALGANCICLOVIR. [Concomitant]
     Active Substance: VALGANCICLOVIR
     Indication: ANTIVIRAL PROPHYLAXIS
     Dosage: ADMINISTERED ON MONDAY, WEDNESDAY AND FRIDAYS OF THE WEEK
     Route: 065
  4. MYCOPHENOLATE SODIUM [Suspect]
     Active Substance: MYCOPHENOLATE SODIUM
     Indication: IMMUNOSUPPRESSANT DRUG THERAPY
     Route: 048
  5. SULFAMETHOXAZOLE/TRIMETHOPRIM [Concomitant]
     Active Substance: SULFAMETHOXAZOLE\TRIMETHOPRIM
     Indication: ANTIBIOTIC PROPHYLAXIS
     Dosage: DOUBLE-STRENGTH TABLETS WERE ADMINISTERED THREE TIMES A WEEK
     Route: 065
  6. CLOTRIMAZOLE. [Concomitant]
     Active Substance: CLOTRIMAZOLE
     Indication: ANTIFUNGAL PROPHYLAXIS
     Dosage: FORMULATION: TROCHE
     Route: 065
  7. ALEMTUZUMAB [Suspect]
     Active Substance: ALEMTUZUMAB
     Indication: IMMUNOSUPPRESSANT DRUG THERAPY
     Route: 042
  8. TACROLIMUS. [Suspect]
     Active Substance: TACROLIMUS
     Indication: IMMUNOSUPPRESSANT DRUG THERAPY
     Dosage: GOAL TROUGH OF APPROXIMATELY 10 NG/ML
     Route: 065

REACTIONS (1)
  - Cytomegalovirus colitis [Unknown]
